FAERS Safety Report 5190405-6 (Version None)
Quarter: 2006Q4

REPORT INFORMATION
  Report Type: 
  Country: None (occurrence: None)
  Receive Date: 20061222
  Receipt Date: 20050609
  Transmission Date: 20070319
  Serious: Yes (Death, Hospitalization)
  Sender: FDA-Public Use
  Company Number: 2005UW08991

PATIENT
  Age: 65 Year
  Sex: Female

DRUGS (20)
  1. CRESTOR [Suspect]
     Indication: HYPERLIPIDAEMIA
     Route: 048
     Dates: start: 20040804, end: 20050130
  2. LASIX [Suspect]
     Route: 048
  3. DIOVAN [Suspect]
     Indication: HYPERTENSION
     Route: 048
  4. IV CONTRAST [Suspect]
     Dates: start: 20050107
  5. MEGACE [Concomitant]
     Indication: WEIGHT DECREASED
     Route: 048
     Dates: start: 20050110
  6. COUMADIN [Concomitant]
     Route: 048
  7. IRESSA [Concomitant]
     Indication: LUNG CANCER METASTATIC
     Route: 048
     Dates: start: 20041108, end: 20050107
  8. DEXAMETHASONE [Concomitant]
  9. CELEXA [Concomitant]
     Route: 048
  10. DIGOXIN [Concomitant]
     Route: 048
  11. POTASSIUM ACETATE [Concomitant]
     Route: 048
  12. PAROXETINE HCL [Concomitant]
  13. CYANOCOBALAMIN [Concomitant]
     Route: 048
  14. SOTALOL HYDROCHLORIDE [Concomitant]
     Indication: ARRHYTHMIA
     Route: 048
  15. KAY CIEL DURA-TABS [Concomitant]
     Route: 048
  16. PYRIDOXINE HCL [Concomitant]
     Route: 048
  17. INOSITOL [Concomitant]
  18. PROTONIX [Concomitant]
  19. TYLENOL [Concomitant]
     Indication: HEADACHE
  20. MARINOL [Concomitant]

REACTIONS (7)
  - CONVULSION [None]
  - DEATH [None]
  - RENAL FAILURE ACUTE [None]
  - RHABDOMYOLYSIS [None]
  - SHOCK [None]
  - URINARY TRACT INFECTION [None]
  - VENTRICULAR TACHYCARDIA [None]
